FAERS Safety Report 4263380-6 (Version None)
Quarter: 2004Q1

REPORT INFORMATION
  Report Type: 
  Country: None (occurrence: None)
  Receive Date: 20040105
  Receipt Date: 20031212
  Transmission Date: 20041129
  Serious: Yes (Disabling, Other)
  Sender: FDA-Public Use
  Company Number: WAES 0312USA01424

PATIENT
  Age: 66 Year
  Sex: Female
  Weight: 85 kg

DRUGS (7)
  1. NORVASC [Concomitant]
     Route: 048
  2. ASPIRIN [Concomitant]
  3. ZETIA [Suspect]
     Indication: HYPERCHOLESTEROLAEMIA
     Route: 048
     Dates: start: 20030301, end: 20030901
  4. ZETIA [Suspect]
     Route: 048
     Dates: start: 20030301, end: 20030901
  5. PRINIVIL [Concomitant]
     Route: 048
  6. LOPRESSOR [Concomitant]
     Route: 048
  7. VIOXX [Concomitant]
     Route: 048

REACTIONS (7)
  - FATIGUE [None]
  - HEPATITIS ACUTE [None]
  - HYPERPHAGIA [None]
  - INFLUENZA LIKE ILLNESS [None]
  - MYALGIA [None]
  - RHINORRHOEA [None]
  - TEMPERATURE INTOLERANCE [None]
